FAERS Safety Report 8371044-2 (Version None)
Quarter: 2012Q2

REPORT INFORMATION
  Report Type: 
  Country: None (occurrence: None)
  Receive Date: 20120518
  Receipt Date: 20120511
  Transmission Date: 20120825
  Serious: Yes (Hospitalization, Other)
  Sender: FDA-Public Use
  Company Number: US-ABBOTT-12P-163-0932294-00

PATIENT
  Age: 62 Year
  Sex: Female
  Weight: 102.15 kg

DRUGS (4)
  1. PRAVASTATIN [Concomitant]
     Indication: BLOOD CHOLESTEROL INCREASED
     Route: 048
  2. HYDROCHLOROTHIAZIDE [Concomitant]
     Indication: PLEURAL EFFUSION
  3. METHOTREXATE [Concomitant]
     Indication: RHEUMATOID ARTHRITIS
     Route: 048
  4. HUMIRA [Suspect]
     Indication: RHEUMATOID ARTHRITIS

REACTIONS (5)
  - PLEURAL EFFUSION [None]
  - ARTHRALGIA [None]
  - OSTEOARTHRITIS [None]
  - INTERVERTEBRAL DISC SPACE NARROWING [None]
  - RHEUMATOID ARTHRITIS [None]
